FAERS Safety Report 12113490 (Version 2)
Quarter: 2017Q2

REPORT INFORMATION
  Report Type: Spontaneous
  Country: NL (occurrence: NL)
  Receive Date: 20160225
  Receipt Date: 20170421
  Transmission Date: 20170829
  Serious: Yes (Other)
  Sender: FDA-Public Use
  Company Number: NL-SUN PHARMACEUTICAL INDUSTRIES LTD-2016R1-111991

PATIENT
  Age: 7 Year
  Sex: Male

DRUGS (2)
  1. PHENYTOIN. [Suspect]
     Active Substance: PHENYTOIN
     Indication: EPILEPSY
     Dosage: UNK
     Route: 065
  2. PHENYTOIN. [Suspect]
     Active Substance: PHENYTOIN
     Indication: GENE MUTATION

REACTIONS (5)
  - Cerebellar atrophy [Unknown]
  - Ataxia [Unknown]
  - Drug use disorder [Unknown]
  - Gingival hypertrophy [Unknown]
  - Cognitive disorder [Unknown]
